FAERS Safety Report 6171755-3 (Version None)
Quarter: 2009Q2

REPORT INFORMATION
  Report Type: 
  Country: None (occurrence: None)
  Receive Date: 20090428
  Receipt Date: 20090428
  Transmission Date: 20091009
  Serious: Yes (Death)
  Sender: FDA-Public Use
  Company Number: None

PATIENT
  Age: 61 Year
  Sex: Female
  Weight: 108.8633 kg

DRUGS (3)
  1. VANCOMYCIN HCL [Suspect]
     Indication: SEPSIS
     Dosage: IV
     Route: 042
     Dates: start: 20080401, end: 20080510
  2. GLIMIPERIDE [Concomitant]
  3. ALLOPURINOL [Concomitant]

REACTIONS (12)
  - ACUTE RESPIRATORY DISTRESS SYNDROME [None]
  - BACTERIAL INFECTION [None]
  - BURNS THIRD DEGREE [None]
  - DIABETES MELLITUS [None]
  - DIALYSIS [None]
  - FLUID INTAKE REDUCED [None]
  - HALLUCINATION [None]
  - HEPATIC FAILURE [None]
  - HYPOPHAGIA [None]
  - OCULAR ICTERUS [None]
  - RENAL FAILURE [None]
  - STEVENS-JOHNSON SYNDROME [None]
